FAERS Safety Report 4511069-8 (Version None)
Quarter: 2004Q4

REPORT INFORMATION
  Report Type: 
  Country: None (occurrence: None)
  Receive Date: 20041015
  Receipt Date: 20040301
  Transmission Date: 20050328
  Serious: Yes (Other)
  Sender: FDA-Public Use
  Company Number: 2004014209

PATIENT
  Sex: Male
  Weight: 124.7392 kg

DRUGS (7)
  1. NEURONTIN [Suspect]
     Indication: NEUROPATHY
     Dosage: 500 MG (BID), ORAL
     Route: 048
     Dates: start: 20010101
  2. ATENOLOL [Concomitant]
  3. HYZAAR [Concomitant]
  4. ASPIRIN [Concomitant]
  5. ANTITHROMBOTIC AGENTS (ANTITHROMBOTIC AGENTS) [Concomitant]
  6. TORSEMIDE [Concomitant]
  7. CARDIOVASCULAR SYSTEM DRUGS (CARDIOVASCULAR SYSTEM DRUGS) [Concomitant]

REACTIONS (2)
  - CATARACT SUBCAPSULAR [None]
  - NEUROPATHY [None]
